FAERS Safety Report 11241916 (Version 6)
Quarter: 2016Q4

REPORT INFORMATION
  Report Type: Spontaneous
  Country: US (occurrence: US)
  Receive Date: 20150706
  Receipt Date: 20161219
  Transmission Date: 20170206
  Serious: No
  Sender: FDA-Public Use
  Company Number: US-009507513-1507USA000437

PATIENT
  Age: 22 Year
  Sex: Female

DRUGS (1)
  1. IMPLANON [Suspect]
     Active Substance: ETONOGESTREL
     Indication: CONTRACEPTION
     Dosage: 68MG / ONE ROD PER 3 YEARS
     Dates: start: 20090102

REACTIONS (7)
  - Device difficult to use [Not Recovered/Not Resolved]
  - Complication associated with device [Recovered/Resolved]
  - Device deployment issue [Not Recovered/Not Resolved]
  - Device difficult to use [Not Recovered/Not Resolved]
  - Incorrect drug administration duration [Unknown]
  - No adverse event [Unknown]
  - Device difficult to use [Not Recovered/Not Resolved]

NARRATIVE: CASE EVENT DATE: 20150224
